FAERS Safety Report 4374571-8 (Version None)
Quarter: 2004Q2

REPORT INFORMATION
  Report Type: 
  Country: None (occurrence: None)
  Receive Date: 20040609
  Receipt Date: 20020516
  Transmission Date: 20050107
  Serious: Yes (Hospitalization, Other)
  Sender: FDA-Public Use
  Company Number: US-MERCK-0205USA02097

PATIENT
  Age: 50 Year
  Sex: Male
  Weight: 99 kg

DRUGS (23)
  1. ALLOPURINOL [Concomitant]
     Route: 065
  2. ALLOPURINOL [Concomitant]
     Route: 065
     Dates: end: 20030101
  3. ASPIRIN [Concomitant]
     Route: 065
     Dates: start: 19960701
  4. LIPITOR [Concomitant]
     Route: 065
  5. LOTENSIN [Concomitant]
     Route: 065
  6. COREG [Concomitant]
     Route: 065
  7. CELEBREX [Concomitant]
     Route: 065
  8. CLOPIDOGREL BISULFATE [Concomitant]
     Route: 065
  9. CARDIZEM [Concomitant]
     Route: 065
  10. PEPCID [Concomitant]
     Route: 065
  11. FLUVASTATIN SODIUM [Concomitant]
     Route: 065
  12. FUROSEMIDE [Concomitant]
     Route: 065
  13. NEURONTIN [Concomitant]
     Route: 065
  14. GLIPIZIDE [Concomitant]
     Route: 065
  15. GLYCINE [Concomitant]
     Route: 065
  16. INSULIN [Concomitant]
     Route: 065
  17. GLUCOPHAGE [Concomitant]
     Route: 065
  18. NITROGLYCERIN [Concomitant]
     Route: 065
  19. ACTOS [Concomitant]
     Route: 065
  20. VIOXX [Suspect]
     Indication: ARTHRALGIA
     Route: 048
     Dates: start: 19990101, end: 20010101
  21. SPIRONOLACTONE [Concomitant]
     Route: 065
  22. TRAZODONE HYDROCHLORIDE [Concomitant]
     Route: 065
  23. COUMADIN [Concomitant]
     Route: 065

REACTIONS (29)
  - AORTIC STENOSIS [None]
  - ATRIAL FIBRILLATION [None]
  - CARDIAC FAILURE CONGESTIVE [None]
  - CHEST PAIN [None]
  - CHRONIC OBSTRUCTIVE AIRWAYS DISEASE [None]
  - CORONARY ARTERY OCCLUSION [None]
  - DIABETIC FOOT [None]
  - DIVERTICULUM [None]
  - EMOTIONAL DISTRESS [None]
  - ERECTILE DYSFUNCTION [None]
  - GOUTY ARTHRITIS [None]
  - ISCHAEMIC CARDIOMYOPATHY [None]
  - MITRAL VALVE INCOMPETENCE [None]
  - MITRAL VALVE PROLAPSE [None]
  - MYOCARDIAL INFARCTION [None]
  - OEDEMA PERIPHERAL [None]
  - OPEN ANGLE GLAUCOMA [None]
  - OVERDOSE [None]
  - PEPTIC ULCER [None]
  - PERIPHERAL OCCLUSIVE DISEASE [None]
  - PULMONARY HYPERTENSION [None]
  - PULMONARY OEDEMA [None]
  - RENAL FAILURE [None]
  - RESPIRATORY FAILURE [None]
  - SLEEP APNOEA SYNDROME [None]
  - SLEEP DISORDER [None]
  - SYNCOPE [None]
  - VASCULAR GRAFT OCCLUSION [None]
  - VASCULAR OCCLUSION [None]
